FAERS Safety Report 24850255 (Version 1)
Quarter: 2025Q1

REPORT INFORMATION
  Report Type: Spontaneous
  Country: US (occurrence: US)
  Receive Date: 20250116
  Receipt Date: 20250116
  Transmission Date: 20250409
  Serious: No
  Sender: GRIFOLS
  Company Number: US-IGSA-BIG0032375

PATIENT
  Age: 55 Year
  Sex: Female
  Weight: 130.6 kg

DRUGS (4)
  1. XEMBIFY [Suspect]
     Active Substance: HUMAN IMMUNOGLOBULIN G
     Indication: Immunodeficiency common variable
     Dosage: 10 GRAM, Q.WK.
     Route: 058
     Dates: start: 20250101
  2. XEMBIFY [Suspect]
     Active Substance: HUMAN IMMUNOGLOBULIN G
     Dosage: 8 GRAM, Q.WK.
     Route: 058
     Dates: start: 20250101
  3. XEMBIFY [Suspect]
     Active Substance: HUMAN IMMUNOGLOBULIN G
     Dosage: 18 GRAM, Q.WK.
     Route: 058
     Dates: start: 202407
  4. BENADRYL [Concomitant]
     Active Substance: DIPHENHYDRAMINE HYDROCHLORIDE
     Indication: Premedication
     Route: 048

REACTIONS (3)
  - Infusion site pruritus [Recovering/Resolving]
  - Infusion site erythema [Recovering/Resolving]
  - Infusion site warmth [Recovering/Resolving]

NARRATIVE: CASE EVENT DATE: 20250101
